FAERS Safety Report 10056020 (Version 2)
Quarter: 2014Q2

REPORT INFORMATION
  Report Type: Report from Study
  Country: US (occurrence: US)
  Receive Date: 20140403
  Receipt Date: 20140516
  Transmission Date: 20141212
  Serious: Yes (Other)
  Sender: FDA-Public Use
  Company Number: PHEH2014US006228

PATIENT
  Sex: Female
  Weight: 72.11 kg

DRUGS (12)
  1. TASIGNA [Suspect]
     Indication: CHRONIC MYELOID LEUKAEMIA
     Dosage: 200 MG, BID
     Route: 048
  2. TASIGNA [Suspect]
     Dosage: 150 MG, BID
     Route: 048
  3. POTASSIUM [Concomitant]
  4. VITAMIN C [Concomitant]
  5. VITAMIN D [Concomitant]
  6. MULTI-VIT [Concomitant]
  7. IRON [Concomitant]
  8. ATIVAN [Concomitant]
  9. LISINOPRIL [Concomitant]
  10. GEMFIBROZIL [Concomitant]
  11. ATENOLOL CHLORTHALIDONE [Concomitant]
  12. GLIPIZIDE [Concomitant]

REACTIONS (6)
  - Peroneal nerve palsy [Recovering/Resolving]
  - Paraesthesia [Recovering/Resolving]
  - Headache [Recovering/Resolving]
  - Nausea [Recovering/Resolving]
  - Vomiting [Recovering/Resolving]
  - Alopecia [Recovering/Resolving]
